FAERS Safety Report 10571270 (Version 4)
Quarter: 2015Q2

REPORT INFORMATION
  Report Type: Report from Study
  Country: US (occurrence: US)
  Receive Date: 20141107
  Receipt Date: 20150401
  Transmission Date: 20150821
  Serious: Yes (Death, Other)
  Sender: FDA-Public Use
  Company Number: US-SA-2014SA150753

PATIENT
  Age: 58 Year
  Sex: Female

DRUGS (2)
  1. AUBAGIO [Suspect]
     Active Substance: TERIFLUNOMIDE
     Indication: MULTIPLE SCLEROSIS
     Route: 048
     Dates: start: 20140821, end: 201412
  2. ANTIBIOTICS [Suspect]
     Active Substance: UNSPECIFIED INGREDIENT

REACTIONS (7)
  - Wound sepsis [Fatal]
  - Scab [Unknown]
  - Wound [Unknown]
  - Muscular weakness [Unknown]
  - Contusion [Unknown]
  - Tunnel vision [Unknown]
  - Optic neuritis [Unknown]

NARRATIVE: CASE EVENT DATE: 201412
